FAERS Safety Report 14481418 (Version 2)
Quarter: 2018Q1

REPORT INFORMATION
  Report Type: Spontaneous
  Country: ID (occurrence: ID)
  Receive Date: 20180202
  Receipt Date: 20180209
  Transmission Date: 20180509
  Serious: Yes (Other)
  Sender: FDA-Public Use
  Company Number: ID-ASTELLAS-2018US005773

PATIENT
  Sex: Female

DRUGS (5)
  1. SANDIMUN [Concomitant]
     Active Substance: CYCLOSPORINE
     Indication: PRODUCT USED FOR UNKNOWN INDICATION
     Dosage: UNK UNK, UNKNOWN FREQ.
     Route: 065
     Dates: start: 1994, end: 2003
  2. PROGRAF [Suspect]
     Active Substance: TACROLIMUS\TACROLIMUS ANHYDROUS
     Indication: PROPHYLAXIS AGAINST TRANSPLANT REJECTION
     Route: 048
     Dates: start: 2010
  3. PROGRAF [Suspect]
     Active Substance: TACROLIMUS\TACROLIMUS ANHYDROUS
     Indication: PROPHYLAXIS AGAINST TRANSPLANT REJECTION
     Dosage: 1 MG DAILY DOSE, TWICE DAILY
     Route: 048
     Dates: start: 2013
  4. PROGRAF [Suspect]
     Active Substance: TACROLIMUS\TACROLIMUS ANHYDROUS
     Indication: PROPHYLAXIS AGAINST TRANSPLANT REJECTION
     Route: 048
     Dates: start: 2003, end: 2013
  5. IMURAN [Concomitant]
     Active Substance: AZATHIOPRINE
     Indication: PRODUCT USED FOR UNKNOWN INDICATION
     Dosage: UNK UNK, UNKNOWN FREQ.
     Route: 065
     Dates: start: 1994, end: 2003

REACTIONS (12)
  - Diarrhoea [Unknown]
  - Sputum discoloured [Unknown]
  - Gastrointestinal disorder [Recovering/Resolving]
  - Ovarian cyst [Unknown]
  - Vomiting [Unknown]
  - Loss of consciousness [Unknown]
  - Abdominal discomfort [Unknown]
  - Transplant rejection [Unknown]
  - Dizziness [Recovered/Resolved]
  - Immunosuppressant drug level decreased [Unknown]
  - Thrombosis [Unknown]
  - Haemoglobin decreased [Unknown]

NARRATIVE: CASE EVENT DATE: 1994
